FAERS Safety Report 21031374 (Version 1)
Quarter: 2022Q3

REPORT INFORMATION
  Report Type: Spontaneous
  Country: US (occurrence: US)
  Receive Date: 20220701
  Receipt Date: 20220701
  Transmission Date: 20221027
  Serious: Yes (Other)
  Sender: FDA-Public Use
  Company Number: US-NOVOPROD-931696

PATIENT
  Age: 18 Month
  Sex: Female

DRUGS (2)
  1. NOVOSEVEN [Suspect]
     Active Substance: COAGULATION FACTOR VIIA RECOMBINANT HUMAN
     Dosage: 90 ?G/KG, BID (EVERY 12 HOURS)
     Route: 042
  2. NOVOSEVEN [Suspect]
     Active Substance: COAGULATION FACTOR VIIA RECOMBINANT HUMAN
     Indication: Factor VII deficiency
     Dosage: 30 ?G/KG, QD
     Route: 042

REACTIONS (5)
  - Subdural haematoma [Unknown]
  - Haemorrhage intracranial [Unknown]
  - Haemarthrosis [Unknown]
  - Factor VII inhibition [Not Recovered/Not Resolved]
  - Off label use [Unknown]
